FAERS Safety Report 16475497 (Version 2)
Quarter: 2019Q3

REPORT INFORMATION
  Report Type: Report from Study
  Country: US (occurrence: US)
  Receive Date: 20190625
  Receipt Date: 20190718
  Transmission Date: 20191004
  Serious: Yes (Other)
  Sender: FDA-Public Use
  Company Number: US-TAKEDA-2019TUS039072

PATIENT
  Sex: Male

DRUGS (1)
  1. PONATINIB [Suspect]
     Active Substance: PONATINIB
     Indication: CHRONIC MYELOID LEUKAEMIA
     Dosage: 30 MILLIGRAM, QD
     Route: 048
     Dates: start: 20141230

REACTIONS (16)
  - Upper respiratory tract infection [Unknown]
  - Muscle spasms [Unknown]
  - Blindness [Unknown]
  - Snoring [Unknown]
  - Sleep disorder [Unknown]
  - Arthralgia [Unknown]
  - Dyspnoea [Unknown]
  - Rash [Unknown]
  - Back pain [Unknown]
  - Ear pain [Unknown]
  - Chest pain [Unknown]
  - Chills [Unknown]
  - Pharyngeal erythema [Unknown]
  - Pyrexia [Unknown]
  - Dry skin [Unknown]
  - Eye irritation [Unknown]
